FAERS Safety Report 12358909 (Version 2)
Quarter: 2016Q2

REPORT INFORMATION
  Report Type: Spontaneous
  Country: ZM (occurrence: ZM)
  Receive Date: 20160512
  Receipt Date: 20160513
  Transmission Date: 20160815
  Serious: Yes (Death)
  Sender: FDA-Public Use
  Company Number: ZM-CIPLA LTD.-2016US05042

PATIENT

DRUGS (1)
  1. LEVETIRACETAM. [Suspect]
     Active Substance: LEVETIRACETAM
     Indication: SEIZURE
     Dosage: UNK
     Route: 065

REACTIONS (1)
  - Death [Fatal]
